FAERS Safety Report 7552751-8 (Version None)
Quarter: 2011Q2

REPORT INFORMATION
  Report Type: 
  Country: None (occurrence: None)
  Receive Date: 20110616
  Receipt Date: 20110615
  Transmission Date: 20111010
  Serious: Yes (Life-Threatening, Hospitalization, Other)
  Sender: FDA-Public Use
  Company Number: US-BRISTOL-MYERS SQUIBB COMPANY-15744733

PATIENT
  Age: 76 Year
  Sex: Male

DRUGS (1)
  1. COUMADIN [Suspect]
     Indication: ATRIAL FIBRILLATION
     Dosage: 1DF= 7.5MG - 3 DAYS A WEEK, 5MG ON 4 DAYS A WEEK,INTERRUPTED  NOT RESTARTED
     Route: 048

REACTIONS (3)
  - HAEMOPTYSIS [None]
  - PLATELET COUNT DECREASED [None]
  - PULMONARY HAEMORRHAGE [None]
